FAERS Safety Report 9517537 (Version 1)
Quarter: 2013Q3

REPORT INFORMATION
  Report Type: Report from Study
  Country: US (occurrence: US)
  Receive Date: 20130911
  Receipt Date: 20130911
  Transmission Date: 20140515
  Serious: Yes (Other)
  Sender: FDA-Public Use
  Company Number: US-ABBOTT-13P-163-1144634-00

PATIENT
  Sex: Male
  Weight: 111.23 kg

DRUGS (14)
  1. HUMIRA [Suspect]
     Indication: RHEUMATOID ARTHRITIS
  2. HUMIRA [Suspect]
     Indication: RHEUMATOID ARTHRITIS
     Dates: start: 201206
  3. FEXODINE [Concomitant]
     Indication: PRODUCT USED FOR UNKNOWN INDICATION
  4. POTASSIUM [Concomitant]
     Indication: MINERAL SUPPLEMENTATION
  5. TRAZODONE [Concomitant]
     Indication: INSOMNIA
  6. LYRICA [Concomitant]
     Indication: ARTHRITIS
  7. LYRICA [Concomitant]
     Indication: FIBROMYALGIA
  8. CYMBALTA [Concomitant]
     Indication: RHEUMATOID ARTHRITIS
  9. METHOTREXATE [Concomitant]
     Indication: RHEUMATOID ARTHRITIS
  10. MECLIZINE [Concomitant]
     Indication: DIZZINESS
  11. FOLIC ACID [Concomitant]
     Indication: VITAMIN SUPPLEMENTATION
  12. LEFLUNOMIDE [Concomitant]
     Indication: RHEUMATOID ARTHRITIS
  13. UNKNOWN MEDICATION [Concomitant]
     Indication: HYPERSENSITIVITY
  14. FUROSEMIDE [Concomitant]
     Indication: SWELLING

REACTIONS (4)
  - Prostatic specific antigen increased [Recovering/Resolving]
  - Prostate cancer [Recovered/Resolved]
  - Thrombosis [Recovered/Resolved]
  - Dizziness [Recovered/Resolved]
